FAERS Safety Report 5619856-X (Version None)
Quarter: 2008Q1

REPORT INFORMATION
  Report Type: 
  Country: None (occurrence: None)
  Receive Date: 20080208
  Receipt Date: 20080125
  Transmission Date: 20080703
  Serious: Yes (Life-Threatening, Hospitalization)
  Sender: FDA-Public Use
  Company Number: NL-AMGEN-US260688

PATIENT
  Sex: Male
  Weight: 75 kg

DRUGS (4)
  1. ENBREL [Suspect]
     Indication: PSORIASIS
     Route: 058
     Dates: start: 20050301, end: 20060301
  2. ENBREL [Suspect]
     Route: 058
     Dates: start: 20070101
  3. TEMAZEPAM [Concomitant]
     Indication: SLEEP DISORDER
  4. LACTITOL [Concomitant]

REACTIONS (1)
  - SUBARACHNOID HAEMORRHAGE [None]
